FAERS Safety Report 8383069-1 (Version None)
Quarter: 2012Q2

REPORT INFORMATION
  Report Type: 
  Country: None (occurrence: None)
  Receive Date: 20120524
  Receipt Date: 20120515
  Transmission Date: 20120825
  Serious: Yes (Other)
  Sender: FDA-Public Use
  Company Number: US-JNJFOC-20120514380

PATIENT
  Sex: Male
  Weight: 83.92 kg

DRUGS (7)
  1. XARELTO [Suspect]
     Indication: ATRIAL FIBRILLATION
     Route: 048
     Dates: start: 20120301
  2. LISINOPRIL [Concomitant]
     Indication: BLOOD PRESSURE
     Route: 048
     Dates: start: 20080101
  3. TRICOR [Concomitant]
     Indication: BLOOD TRIGLYCERIDES
     Route: 048
     Dates: start: 20110101
  4. THIOGUANINE [Concomitant]
     Route: 048
     Dates: start: 20080123
  5. XARELTO [Suspect]
     Route: 048
     Dates: start: 20120303, end: 20120301
  6. LIPITOR [Concomitant]
     Indication: BLOOD CHOLESTEROL
     Route: 048
     Dates: start: 20090101
  7. FLECAINIDE ACETATE [Concomitant]
     Indication: ATRIAL FIBRILLATION
     Route: 048
     Dates: start: 20010101

REACTIONS (4)
  - SEASONAL ALLERGY [None]
  - ARTHRITIS [None]
  - HAEMORRHAGE [None]
  - BACTERIAL INFECTION [None]
